FAERS Safety Report 6117255-8 (Version None)
Quarter: 2009Q1

REPORT INFORMATION
  Report Type: 
  Country: None (occurrence: None)
  Receive Date: 20090314
  Receipt Date: 20090120
  Transmission Date: 20090719
  Serious: No
  Sender: FDA-Public Use
  Company Number: US-ABBOTT-09P-163-0496286-00

PATIENT
  Sex: Female
  Weight: 106.24 kg

DRUGS (5)
  1. HUMIRA [Suspect]
     Indication: RHEUMATOID ARTHRITIS
     Route: 058
     Dates: start: 20081202, end: 20090106
  2. HUMIRA [Suspect]
     Indication: CROHN'S DISEASE
  3. HUMIRA [Suspect]
     Indication: ANGIOEDEMA
  4. BENICAR [Concomitant]
     Indication: HYPERTENSION
  5. AMARYL [Concomitant]
     Indication: DIABETES MELLITUS

REACTIONS (9)
  - DIARRHOEA [None]
  - EYE SWELLING [None]
  - FATIGUE [None]
  - HEADACHE [None]
  - INJECTION SITE ERYTHEMA [None]
  - INJECTION SITE NODULE [None]
  - INJECTION SITE OEDEMA [None]
  - INJECTION SITE REACTION [None]
  - OEDEMA PERIPHERAL [None]
